FAERS Safety Report 8614246-X (Version None)
Quarter: 2012Q3

REPORT INFORMATION
  Report Type: 
  Country: None (occurrence: None)
  Receive Date: 20120813
  Receipt Date: 20120813
  Transmission Date: 20120928
  Serious: Yes (Hospitalization)
  Sender: FDA-Public Use
  Company Number: None

PATIENT
  Age: 71 Year
  Sex: Male
  Weight: 132.8 kg

DRUGS (1)
  1. LENALIDOMIDE [Suspect]
     Indication: NON-HODGKIN'S LYMPHOMA
     Dosage: 10 MG EVERY DAY PO
     Route: 048
     Dates: start: 20111118, end: 20120726

REACTIONS (3)
  - DIZZINESS [None]
  - HYPOTENSION [None]
  - DIARRHOEA [None]
